FAERS Safety Report 6894114-4 (Version None)
Quarter: 2010Q3

REPORT INFORMATION
  Report Type: 
  Country: None (occurrence: None)
  Receive Date: 20100802
  Receipt Date: 20100723
  Transmission Date: 20110219
  Serious: Yes (Other)
  Sender: FDA-Public Use
  Company Number: US-JNJFOC-20100708419

PATIENT
  Sex: Female

DRUGS (5)
  1. DURAGESIC-100 [Suspect]
     Indication: PAIN
     Route: 062
  2. DURAGESIC-100 [Suspect]
     Route: 062
  3. DURAGESIC-100 [Suspect]
     Dosage: DOSE: 12.5 UG/HR   25 UG/HR PATCH  NDC#: 50458-0090-05 AND 50458-0091-05
     Route: 062
  4. ESTROGEN [Concomitant]
     Indication: HOT FLUSH
     Route: 048
  5. NORCO [Concomitant]
     Indication: BREAKTHROUGH PAIN
     Route: 048

REACTIONS (10)
  - BEDRIDDEN [None]
  - BLOOD CHOLESTEROL INCREASED [None]
  - DEPRESSION [None]
  - HYPOTHYROIDISM [None]
  - PAIN [None]
  - PRODUCT ADHESION ISSUE [None]
  - PRODUCT QUALITY ISSUE [None]
  - SPINAL OSTEOARTHRITIS [None]
  - WEIGHT INCREASED [None]
  - WRONG TECHNIQUE IN DRUG USAGE PROCESS [None]
